FAERS Safety Report 25830020 (Version 1)
Quarter: 2025Q3

REPORT INFORMATION
  Report Type: Spontaneous
  Country: US (occurrence: US)
  Receive Date: 20250922
  Receipt Date: 20250922
  Transmission Date: 20251020
  Serious: No
  Sender: BIONPHARMA INC.
  Company Number: US-Bion-015260

PATIENT
  Age: 49 Year
  Sex: Female
  Weight: 65.77 kg

DRUGS (1)
  1. NAPROXEN SODIUM [Suspect]
     Active Substance: NAPROXEN SODIUM
     Indication: Dysmenorrhoea
     Route: 048
     Dates: start: 202507

REACTIONS (3)
  - Poor quality product administered [Unknown]
  - Product solubility abnormal [Unknown]
  - Product physical issue [Unknown]
